FAERS Safety Report 7297295-6 (Version None)
Quarter: 2011Q1

REPORT INFORMATION
  Report Type: 
  Country: None (occurrence: None)
  Receive Date: 20110216
  Receipt Date: 20110209
  Transmission Date: 20110831
  Serious: Yes (Other)
  Sender: FDA-Public Use
  Company Number: CHPA2011US02551

PATIENT
  Age: 24 Month
  Sex: Female

DRUGS (1)
  1. TRIAMINIC FEVER REDUCER PAIN RELIEVER [Suspect]
     Dosage: UNK , UNK
     Route: 048
     Dates: start: 20110203, end: 20110203

REACTIONS (2)
  - HALLUCINATION [None]
  - NAUSEA [None]
